FAERS Safety Report 11221038 (Version 20)
Quarter: 2018Q2

REPORT INFORMATION
  Report Type: Spontaneous
  Country: CA (occurrence: CA)
  Receive Date: 20150626
  Receipt Date: 20180620
  Transmission Date: 20180711
  Serious: Yes (Hospitalization, Other)
  Sender: FDA-Public Use
  Company Number: CA-ROCHE-1599654

PATIENT
  Age: 30 Year
  Sex: Female

DRUGS (19)
  1. XOLAIR [Suspect]
     Active Substance: OMALIZUMAB
     Route: 058
     Dates: start: 20150219
  2. XOLAIR [Suspect]
     Active Substance: OMALIZUMAB
     Route: 058
     Dates: start: 20170228
  3. SYMBICORT [Concomitant]
     Active Substance: BUDESONIDE\FORMOTEROL FUMARATE DIHYDRATE
     Indication: PRODUCT USED FOR UNKNOWN INDICATION
     Dosage: 8-12 INH/DAY
     Route: 055
  4. XOLAIR [Suspect]
     Active Substance: OMALIZUMAB
     Route: 058
     Dates: start: 20160331
  5. XOLAIR [Suspect]
     Active Substance: OMALIZUMAB
     Route: 058
     Dates: start: 20160719
  6. XOLAIR [Suspect]
     Active Substance: OMALIZUMAB
     Route: 058
     Dates: start: 20170105
  7. XOLAIR [Suspect]
     Active Substance: OMALIZUMAB
     Route: 058
     Dates: start: 20170524
  8. XOLAIR [Suspect]
     Active Substance: OMALIZUMAB
     Route: 058
     Dates: start: 20170621
  9. XOLAIR [Suspect]
     Active Substance: OMALIZUMAB
     Route: 058
     Dates: start: 20171206
  10. XOLAIR [Suspect]
     Active Substance: OMALIZUMAB
     Route: 058
     Dates: start: 20141126
  11. XOLAIR [Suspect]
     Active Substance: OMALIZUMAB
     Indication: ASTHMA
     Route: 058
     Dates: start: 20141029
  12. XOLAIR [Suspect]
     Active Substance: OMALIZUMAB
     Route: 058
     Dates: start: 20160524
  13. XOLAIR [Suspect]
     Active Substance: OMALIZUMAB
     Route: 058
     Dates: start: 20161206
  14. XOLAIR [Suspect]
     Active Substance: OMALIZUMAB
     Route: 058
     Dates: start: 20170425
  15. XOLAIR [Suspect]
     Active Substance: OMALIZUMAB
     Route: 058
     Dates: start: 20160301
  16. XOLAIR [Suspect]
     Active Substance: OMALIZUMAB
     Route: 058
     Dates: start: 20171010
  17. XOLAIR [Suspect]
     Active Substance: OMALIZUMAB
     Route: 058
     Dates: start: 20180522
  18. XOLAIR [Suspect]
     Active Substance: OMALIZUMAB
     Route: 058
     Dates: start: 20160426
  19. XOLAIR [Suspect]
     Active Substance: OMALIZUMAB
     Route: 058
     Dates: start: 20160621

REACTIONS (34)
  - Dyspnoea [Unknown]
  - Ear infection [Unknown]
  - Ear pain [Not Recovered/Not Resolved]
  - Swollen tongue [Unknown]
  - Injection site bruising [Unknown]
  - Erythema [Unknown]
  - Throat irritation [Unknown]
  - Malaise [Unknown]
  - Exposure to allergen [Unknown]
  - Allergy to surgical sutures [Unknown]
  - Asthma [Unknown]
  - Postoperative wound complication [Unknown]
  - Burning sensation [Unknown]
  - Glossodynia [Unknown]
  - Respiratory distress [Unknown]
  - Respiratory disorder [Unknown]
  - Joint dislocation [Unknown]
  - Ligament sprain [Unknown]
  - Hypersensitivity [Unknown]
  - Lung infection [Unknown]
  - Pharyngitis streptococcal [Unknown]
  - Rubber sensitivity [Unknown]
  - Ludwig angina [Unknown]
  - Aphonia [Unknown]
  - Mouth ulceration [Unknown]
  - Rash [Unknown]
  - Fatigue [Unknown]
  - Palatal swelling [Unknown]
  - Hypertension [Unknown]
  - Sinusitis [Unknown]
  - Bronchitis [Recovering/Resolving]
  - Nasopharyngitis [Not Recovered/Not Resolved]
  - Decreased activity [Recovered/Resolved]
  - Oropharyngeal pain [Not Recovered/Not Resolved]

NARRATIVE: CASE EVENT DATE: 20141029
